FAERS Safety Report 11965317 (Version 1)
Quarter: 2016Q1

REPORT INFORMATION
  Report Type: Spontaneous
  Country: IT (occurrence: IT)
  Receive Date: 20160127
  Receipt Date: 20160127
  Transmission Date: 20160526
  Serious: Yes (Hospitalization)
  Sender: FDA-Public Use
  Company Number: PHHY2016IT010135

PATIENT
  Age: 28 Year
  Sex: Male

DRUGS (4)
  1. HALDOL [Concomitant]
     Active Substance: HALOPERIDOL
     Indication: SCHIZOPHRENIA
     Dosage: 10 MG, UNK
     Route: 048
     Dates: start: 20150101, end: 20151205
  2. TOLEP [Suspect]
     Active Substance: OXCARBAZEPINE
     Indication: IMPULSIVE BEHAVIOUR
     Dosage: 1 DF, TOTAL
     Route: 048
     Dates: start: 20151206, end: 20151206
  3. TOLEP [Suspect]
     Active Substance: OXCARBAZEPINE
     Indication: AFFECTIVE DISORDER
  4. AKINETON [Concomitant]
     Active Substance: BIPERIDEN HYDROCHLORIDE
     Indication: EXTRAPYRAMIDAL DISORDER
     Dosage: 4 MG, UNK
     Route: 048
     Dates: start: 20150101, end: 20151205

REACTIONS (5)
  - Drug abuse [Recovering/Resolving]
  - Bundle branch block [Unknown]
  - Suicide attempt [Recovering/Resolving]
  - Sopor [Recovering/Resolving]
  - Product use issue [Unknown]

NARRATIVE: CASE EVENT DATE: 20151206
